FAERS Safety Report 16687465 (Version 1)
Quarter: 2019Q3

REPORT INFORMATION
  Report Type: Spontaneous
  Country: US (occurrence: US)
  Receive Date: 20190624
  Receipt Date: 20190624
  Transmission Date: 20191004
  Serious: No
  Sender: FDA-Public Use
  Company Number: None

PATIENT
  Age: 75 Year
  Sex: Female
  Weight: 72.57 kg

DRUGS (15)
  1. DOFETILIDE(TIKOSYN)  125MCG [Concomitant]
  2. LOSARTIN POTASSIUM 50MG [Concomitant]
  3. WARFARIN 4MG [Concomitant]
     Active Substance: WARFARIN
  4. BOTOX [Suspect]
     Active Substance: ONABOTULINUMTOXINA
  5. POT CHLORIDE 10MCG [Concomitant]
  6. VITAMIN D3  1000IU [Concomitant]
  7. WARFARIN 5MG [Concomitant]
     Active Substance: WARFARIN
  8. LANSOPRAZOLE 30MG [Concomitant]
     Active Substance: LANSOPRAZOLE
  9. TRAZODONE 25MG [Concomitant]
  10. CARTIA XT [Concomitant]
     Active Substance: DILTIAZEM HYDROCHLORIDE
  11. METOPROLOL SUCCINATE ER 25MG [Concomitant]
  12. FUROSEMIDE. [Concomitant]
     Active Substance: FUROSEMIDE
  13. PRO-BIOTIC 30 BILLION [Concomitant]
  14. XANAX [Concomitant]
     Active Substance: ALPRAZOLAM
  15. FLUTICASONE PROPIONATE 50MCG [Concomitant]
     Active Substance: FLUTICASONE PROPIONATE

REACTIONS (3)
  - Eye swelling [None]
  - Asthenopia [None]
  - Skin lesion [None]

NARRATIVE: CASE EVENT DATE: 20170302
